FAERS Safety Report 4914111-5 (Version None)
Quarter: 2006Q1

REPORT INFORMATION
  Report Type: 
  Country: None (occurrence: None)
  Receive Date: 20060210
  Receipt Date: 20051107
  Transmission Date: 20060701
  Serious: Yes (Disabling, Other)
  Sender: FDA-Public Use
  Company Number: 2005155082

PATIENT
  Age: 27 Year
  Sex: Male

DRUGS (1)
  1. CELEBREX [Suspect]
     Indication: PAIN
     Dosage: 1 IN 1 D
     Dates: start: 20050601, end: 20050701

REACTIONS (2)
  - REITER'S SYNDROME [None]
  - SERUM SICKNESS [None]
